FAERS Safety Report 6384987-6 (Version None)
Quarter: 2009Q4

REPORT INFORMATION
  Report Type: 
  Country: None (occurrence: None)
  Receive Date: 20091002
  Receipt Date: 20090922
  Transmission Date: 20100525
  Serious: Yes (Hospitalization, Disabling, Other)
  Sender: FDA-Public Use
  Company Number: NZ-BAYER-200929868GPV

PATIENT
  Age: 33 Year
  Sex: Female

DRUGS (10)
  1. MIRENA [Suspect]
     Indication: CONTRACEPTION
     Route: 015
     Dates: start: 20021001, end: 20071001
  2. MIRENA [Suspect]
     Route: 015
     Dates: start: 20090108, end: 20090814
  3. FLUCLOXACILLIN [Concomitant]
     Indication: EAR INFECTION
     Route: 048
  4. AROPAX [Concomitant]
     Indication: DEPRESSION
     Route: 048
  5. AROPAX [Concomitant]
     Dosage: AS STATED IN SOURCE DOCS OF HOSPITAL REPORT (REGULAR MEDICINES)
     Route: 048
  6. TRIAZOLAM [Concomitant]
     Indication: SEDATION
     Route: 048
  7. TRIAZOLAM [Concomitant]
     Dosage: AS STATED IN SOURCE DOCS OF HOSPITAL REPORT (REGULAR MEDICINES)
     Route: 048
  8. DIAZEPAM [Concomitant]
     Indication: ANXIETY
     Route: 048
  9. LOSEC [Concomitant]
     Indication: GASTROOESOPHAGEAL REFLUX DISEASE
     Dosage: AS STATED IN SOURCE DOCS OF HOSPITAL REPORT (REGULAR MEDICINES)
     Route: 048
  10. LOSEC [Concomitant]
     Route: 048

REACTIONS (9)
  - ABDOMINAL DISCOMFORT [None]
  - DEVICE BREAKAGE [None]
  - DEVICE DISLOCATION [None]
  - PELVIC PAIN [None]
  - PROCEDURAL PAIN [None]
  - SYNCOPE [None]
  - URINARY INCONTINENCE [None]
  - UTERINE RUPTURE [None]
  - VAGINAL HAEMORRHAGE [None]
